FAERS Safety Report 4567972-6 (Version None)
Quarter: 2005Q1

REPORT INFORMATION
  Report Type: 
  Country: None (occurrence: None)
  Receive Date: 20050128
  Receipt Date: 20050114
  Transmission Date: 20050727
  Serious: Yes (Other)
  Sender: FDA-Public Use
  Company Number: A-CH2005-08652

PATIENT
  Age: 55 Year
  Sex: Female

DRUGS (7)
  1. TRACLEER [Suspect]
     Indication: PULMONARY HYPERTENSION
     Dosage: 62.5 MG, BID, ORAL
     Route: 048
  2. FERROUS SULFATE TAB [Concomitant]
  3. EUPANTOL (PANTOPRAZOLE) [Concomitant]
  4. LASILIX (FUROSEMIDE) [Concomitant]
  5. ALDACTONE [Concomitant]
  6. MIXTARD (INSULIN INJECTION, ISOPHANE, INSULIN) [Concomitant]
  7. OXYGEN (OXYGEN) [Concomitant]

REACTIONS (3)
  - GASTROINTESTINAL NEOPLASM [None]
  - MICROCYTIC ANAEMIA [None]
  - VARICES OESOPHAGEAL [None]
